FAERS Safety Report 8216541-5 (Version None)
Quarter: 2012Q1

REPORT INFORMATION
  Report Type: 
  Country: None (occurrence: None)
  Receive Date: 20120314
  Receipt Date: 20120227
  Transmission Date: 20120608
  Serious: Yes (Hospitalization)
  Sender: FDA-Public Use
  Company Number: FK201200724

PATIENT
  Age: 76 Year
  Sex: Female

DRUGS (1)
  1. AMIODARONE HCL [Suspect]
     Indication: TRANSIENT ISCHAEMIC ATTACK
     Dosage: 200  MG/DAILY,

REACTIONS (12)
  - GAIT DISTURBANCE [None]
  - TREMOR [None]
  - DYSARTHRIA [None]
  - MINI MENTAL STATUS EXAMINATION ABNORMAL [None]
  - COORDINATION ABNORMAL [None]
  - CEREBELLAR SYNDROME [None]
  - COGNITIVE DISORDER [None]
  - HEAD TITUBATION [None]
  - NYSTAGMUS [None]
  - ABASIA [None]
  - DISORIENTATION [None]
  - NERVOUS SYSTEM DISORDER [None]
